FAERS Safety Report 5876318-2 (Version None)
Quarter: 2008Q3

REPORT INFORMATION
  Report Type: 
  Country: None (occurrence: None)
  Receive Date: 20080908
  Receipt Date: 20080908
  Transmission Date: 20090109
  Serious: Yes (Hospitalization)
  Sender: FDA-Public Use
  Company Number: None

PATIENT
  Age: 65 Year
  Sex: Female
  Weight: 56.6996 kg

DRUGS (2)
  1. BENTYL [Suspect]
     Indication: ABDOMINAL PAIN LOWER
     Dosage: 10 MG 4 TIME DAY PO
     Route: 048
     Dates: start: 20080709, end: 20080827
  2. LISINOPRIL AND HCTZ [Concomitant]

REACTIONS (8)
  - ACTIVITIES OF DAILY LIVING IMPAIRED [None]
  - INSOMNIA [None]
  - PAIN [None]
  - PYREXIA [None]
  - RASH GENERALISED [None]
  - SKIN DISCOLOURATION [None]
  - SKIN IRRITATION [None]
  - URTICARIA [None]
